FAERS Safety Report 15593893 (Version 5)
Quarter: 2019Q1

REPORT INFORMATION
  Report Type: Report from Study
  Country: US (occurrence: US)
  Receive Date: 20181107
  Receipt Date: 20190220
  Transmission Date: 20190417
  Serious: Yes (Hospitalization)
  Sender: FDA-Public Use
  Company Number: US-MALLINCKRODT-T201803941

PATIENT
  Sex: Male

DRUGS (3)
  1. REPOSITORY CORTICOTROPIN INJECTION [Suspect]
     Active Substance: CORTICOTROPIN
     Indication: NEPHROTIC SYNDROME
     Dosage: 80 UNITS/1ML, 2 TIMES PER WEEK SATURDAY/WEDNESDAY
     Route: 058
     Dates: start: 2018, end: 201901
  2. REPOSITORY CORTICOTROPIN INJECTION [Suspect]
     Active Substance: CORTICOTROPIN
     Dosage: 80 UNITS/1ML, 1 TIME WEEKLY
     Route: 058
     Dates: start: 201901
  3. REPOSITORY CORTICOTROPIN INJECTION [Suspect]
     Active Substance: CORTICOTROPIN
     Indication: PROTEINURIA
     Dosage: 80 UNITS/1ML, 2 TIMES PER WEEK SATURDAY/WEDNESDAY
     Route: 058
     Dates: start: 20180602, end: 2018

REACTIONS (5)
  - Injection site abscess [Recovering/Resolving]
  - Cardiac disorder [Unknown]
  - Abdominal discomfort [Unknown]
  - Blood pressure abnormal [Recovering/Resolving]
  - Stent placement [Recovering/Resolving]

NARRATIVE: CASE EVENT DATE: 2018
